FAERS Safety Report 9478111 (Version 1)
Quarter: 2013Q3

REPORT INFORMATION
  Report Type: Spontaneous
  Country: US (occurrence: US)
  Receive Date: 20130827
  Receipt Date: 20130827
  Transmission Date: 20140515
  Serious: Yes (Other)
  Sender: FDA-Public Use
  Company Number: US-BAYER-2013-103174

PATIENT
  Age: 43 Year
  Sex: Female

DRUGS (6)
  1. YASMIN [Suspect]
  2. YAZ [Suspect]
  3. OCELLA [Suspect]
  4. METHYLPREDNISOLONE [Concomitant]
     Dosage: UNK
     Dates: start: 20120425
  5. METHYLPREDNISOLONE [Concomitant]
     Dosage: UNK
     Dates: start: 20120517
  6. TRAMADOL [Concomitant]
     Dosage: UNK
     Dates: start: 20120517

REACTIONS (1)
  - Thrombophlebitis superficial [None]
